FAERS Safety Report 17227926 (Version 1)
Quarter: 2020Q1

REPORT INFORMATION
  Report Type: Spontaneous
  Country: SE (occurrence: SE)
  Receive Date: 20200103
  Receipt Date: 20200103
  Transmission Date: 20200409
  Serious: Yes (Hospitalization)
  Sender: FDA-Public Use
  Company Number: SE-TEVA-2019-SE-1160523

PATIENT
  Age: 40 Year
  Sex: Female

DRUGS (2)
  1. OXASCAND [Suspect]
     Active Substance: OXAZEPAM
     Dosage: 250 MG
     Route: 048
     Dates: start: 20190528, end: 20190528
  2. PROPAVAN [Suspect]
     Active Substance: PROPIOMAZINE
     Dosage: 120
     Route: 048
     Dates: start: 20190528, end: 20190528

REACTIONS (3)
  - Vomiting [Unknown]
  - Intentional self-injury [Unknown]
  - Intentional overdose [Unknown]

NARRATIVE: CASE EVENT DATE: 20190528
